FAERS Safety Report 9840339 (Version 1)
Quarter: 2014Q1

REPORT INFORMATION
  Report Type: Report from Study
  Country: US (occurrence: US)
  Receive Date: 20140124
  Receipt Date: 20140124
  Transmission Date: 20141002
  Serious: Yes (Other)
  Sender: FDA-Public Use
  Company Number: US-ROCHE-1313542

PATIENT
  Sex: Female

DRUGS (2)
  1. AVASTIN [Suspect]
     Indication: COLON CANCER
     Dosage: PATIENT RECIEVED SUBSEQUENT THERAPIES ON 01/MAY/2013,
     Route: 042
     Dates: start: 20130327
  2. FLUOROURACIL [Concomitant]
     Indication: COLON CANCER
     Route: 042

REACTIONS (4)
  - Metastases to peritoneum [Unknown]
  - Metastases to liver [Unknown]
  - Anaemia of malignant disease [Unknown]
  - Retroperitoneal cancer [Unknown]
